FAERS Safety Report 15970154 (Version 3)
Quarter: 2020Q1

REPORT INFORMATION
  Report Type: Report from Study
  Country: US (occurrence: US)
  Receive Date: 20190215
  Receipt Date: 20200121
  Transmission Date: 20200409
  Serious: Yes (Hospitalization)
  Sender: FDA-Public Use
  Company Number: US-ACTELION-A-NJ2018-182766

PATIENT
  Sex: Female
  Weight: 43.99 kg

DRUGS (5)
  1. UPTRAVI [Suspect]
     Active Substance: SELEXIPAG
     Indication: PULMONARY ARTERIAL HYPERTENSION
     Dosage: 200 MCG IN AM, 200 MCG IN AFTERNOON AND 400 MCG IN EVENING
     Route: 048
  2. UPTRAVI [Suspect]
     Active Substance: SELEXIPAG
     Dosage: 200 MCG IN THE AM, 200 MCG IN AFTERNOON AND200 MCG IN EVENING
     Route: 048
  3. NIFEDIPINE. [Concomitant]
     Active Substance: NIFEDIPINE
  4. OPSUMIT [Suspect]
     Active Substance: MACITENTAN
     Indication: PULMONARY ARTERIAL HYPERTENSION
     Dosage: 10 MG, QD
     Route: 048
  5. ADEMPAS [Concomitant]
     Active Substance: RIOCIGUAT
     Dosage: 2.5 MG, TID

REACTIONS (8)
  - Vomiting [Unknown]
  - Blood disorder [Unknown]
  - Pulmonary oedema [Unknown]
  - Haematochezia [Unknown]
  - Haemoglobin decreased [Unknown]
  - Anaemia [Unknown]
  - Hypoacusis [Unknown]
  - Transfusion [Unknown]
